FAERS Safety Report 20331579 (Version 1)
Quarter: 2022Q1

REPORT INFORMATION
  Report Type: Other
  Country: US (occurrence: None)
  Receive Date: 20220113
  Receipt Date: 20220113
  Transmission Date: 20220423
  Serious: Yes (Hospitalization, Other)
  Sender: FDA-Public Use
  Company Number: US-Neopharma Inc-000692

PATIENT
  Age: 65 Year
  Sex: Female

DRUGS (6)
  1. AMOXICILLIN AND CLAVULANATE POTASSIUM [Suspect]
     Active Substance: AMOXICILLIN\CLAVULANATE POTASSIUM
     Indication: Osteomyelitis
     Dosage: 10 DAY OUTPATIENT COURSE
  2. CHLORPROMAZINE [Suspect]
     Active Substance: CHLORPROMAZINE
     Indication: Schizophrenia
     Dosage: 50 MG DAILY, FOR ATLEAST 4 YEARS
  3. ATORVASTATIN [Suspect]
     Active Substance: ATORVASTATIN
     Indication: Hyperlipidaemia
     Dosage: FOR MORE THAN 9 YEARS
  4. ROSUVASTATIN [Suspect]
     Active Substance: ROSUVASTATIN
     Indication: Hyperlipidaemia
  5. CEFTAZIDIME [Suspect]
     Active Substance: CEFTAZIDIME
     Indication: Osteomyelitis
  6. ACETAMINOPHEN [Concomitant]
     Active Substance: ACETAMINOPHEN
     Indication: Product used for unknown indication
     Dosage: ONE DOSE ADMINISTERED

REACTIONS (4)
  - Drug-induced liver injury [Recovered/Resolved]
  - Cellulitis [Unknown]
  - Disease progression [Unknown]
  - Treatment failure [Unknown]
